FAERS Safety Report 4852181-3 (Version None)
Quarter: 2005Q4

REPORT INFORMATION
  Report Type: 
  Country: None (occurrence: None)
  Receive Date: 20051213
  Receipt Date: 20051118
  Transmission Date: 20060501
  Serious: Yes (Disabling)
  Sender: FDA-Public Use
  Company Number: US-GLAXOSMITHKLINE-A0582911A

PATIENT
  Age: 71 Year
  Sex: Female

DRUGS (4)
  1. VALTREX [Suspect]
     Indication: HERPES SIMPLEX
     Dosage: 1G TWICE PER DAY
     Route: 048
  2. PREDNISONE [Concomitant]
     Dosage: 30MG PER DAY
     Route: 048
  3. VICODIN [Concomitant]
     Route: 048
  4. BUSPAR [Concomitant]
     Route: 048
     Dates: start: 20050501

REACTIONS (4)
  - BURNING SENSATION [None]
  - CARPAL TUNNEL SYNDROME [None]
  - NEUROPATHY PERIPHERAL [None]
  - PAIN [None]
